FAERS Safety Report 6162830-8 (Version None)
Quarter: 2009Q2

REPORT INFORMATION
  Report Type: 
  Country: None (occurrence: None)
  Receive Date: 20090421
  Receipt Date: 20080917
  Transmission Date: 20091009
  Serious: No
  Sender: FDA-Public Use
  Company Number: US-ASTRAZENECA-2008UW17574

PATIENT
  Age: 62 Year
  Sex: Female
  Weight: 81.6 kg

DRUGS (5)
  1. TOPROL-XL [Suspect]
     Indication: ADRENAL DISORDER
     Route: 048
     Dates: start: 20060101
  2. ZANTAC [Concomitant]
  3. NAPROXEN SODIUM [Concomitant]
  4. VIVELLE [Concomitant]
  5. TYLENOL (CAPLET) [Concomitant]

REACTIONS (4)
  - DRY EYE [None]
  - DRY MOUTH [None]
  - NASAL DRYNESS [None]
  - SINUS DISORDER [None]
